FAERS Safety Report 6516610-1 (Version None)
Quarter: 2009Q4

REPORT INFORMATION
  Report Type: 
  Country: None (occurrence: None)
  Receive Date: 20091223
  Receipt Date: 20091221
  Transmission Date: 20100525
  Serious: Yes (Death)
  Sender: FDA-Public Use
  Company Number: CA-MERCK-0901CAN00033

PATIENT
  Age: 68 Year
  Sex: Male

DRUGS (1)
  1. COZAAR [Suspect]
     Indication: ESSENTIAL HYPERTENSION
     Route: 048
     Dates: start: 20081030, end: 20090106

REACTIONS (1)
  - CARDIO-RESPIRATORY ARREST [None]
